FAERS Safety Report 6774069-3 (Version None)
Quarter: 2010Q2

REPORT INFORMATION
  Report Type: 
  Country: None (occurrence: None)
  Receive Date: 20100616
  Receipt Date: 20100616
  Transmission Date: 20101027
  Serious: Yes (Life-Threatening)
  Sender: FDA-Public Use
  Company Number: None

PATIENT
  Age: 53 Year
  Sex: Female
  Weight: 72.5755 kg

DRUGS (2)
  1. CHANTIX [Suspect]
     Indication: SMOKING CESSATION THERAPY
     Dates: start: 20090914, end: 20091104
  2. ATIVAN [Suspect]
     Indication: ANXIETY
     Dates: start: 20091108, end: 20091108

REACTIONS (10)
  - ACUTE CORONARY SYNDROME [None]
  - ALCOHOL USE [None]
  - ALCOHOL WITHDRAWAL SYNDROME [None]
  - ANXIETY [None]
  - CHEST PAIN [None]
  - MOOD ALTERED [None]
  - PSYCHOMOTOR RETARDATION [None]
  - SEDATION [None]
  - SUICIDAL IDEATION [None]
  - SUICIDE ATTEMPT [None]
